FAERS Safety Report 13815188 (Version 4)
Quarter: 2017Q4

REPORT INFORMATION
  Report Type: Spontaneous
  Country: US (occurrence: US)
  Receive Date: 20170731
  Receipt Date: 20171016
  Transmission Date: 20180320
  Serious: Yes (Death, Other)
  Sender: FDA-Public Use
  Company Number: US-PFIZER INC-2017324418

PATIENT
  Sex: Female

DRUGS (3)
  1. CELEBREX [Suspect]
     Active Substance: CELECOXIB
     Dosage: 200 MG, DAILY
  2. METHOTREXATE. [Suspect]
     Active Substance: METHOTREXATE
     Dosage: 3 DF, WEEKLY
  3. GABAPENTIN. [Suspect]
     Active Substance: GABAPENTIN
     Dosage: 4400 MG, DAILY (3TABS BID AND 5 TABS AT BEDTIME)

REACTIONS (24)
  - Prescribed overdose [Unknown]
  - Arthralgia [Unknown]
  - Dry eye [Unknown]
  - Red blood cell count decreased [Unknown]
  - Blood chloride decreased [Unknown]
  - Asthenia [Unknown]
  - Contusion [Unknown]
  - Heart rate increased [Unknown]
  - Immobile [Unknown]
  - Weight decreased [Unknown]
  - Pain [Unknown]
  - Paraesthesia [Unknown]
  - Headache [Unknown]
  - Death [Fatal]
  - Hypoaesthesia [Unknown]
  - Chest pain [Unknown]
  - Hypertension [Unknown]
  - Blood sodium decreased [Unknown]
  - Blood creatinine decreased [Unknown]
  - Fatigue [Unknown]
  - Musculoskeletal pain [Unknown]
  - White blood cell count decreased [Unknown]
  - Multiple sclerosis [Unknown]
  - Dry mouth [Unknown]

NARRATIVE: CASE EVENT DATE: 20170726
